FAERS Safety Report 16439184 (Version 3)
Quarter: 2020Q3

REPORT INFORMATION
  Report Type: Spontaneous
  Country: US (occurrence: US)
  Receive Date: 20190617
  Receipt Date: 20200714
  Transmission Date: 20201102
  Serious: No
  Sender: FDA-Public Use
  Company Number: US-009507513-1905USA009700

PATIENT
  Sex: Female

DRUGS (4)
  1. TEMODAR [Suspect]
     Active Substance: TEMOZOLOMIDE
     Dosage: ^40^ ONCE DAILY
     Route: 048
  2. TEMODAR [Suspect]
     Active Substance: TEMOZOLOMIDE
     Dosage: 45 MILLIGRAM, QD
     Route: 048
  3. TEMODAR [Suspect]
     Active Substance: TEMOZOLOMIDE
     Dosage: 50 MILLIGRAM, QD(2 OF THE 20MG AND 2 OF THE 5MG)
     Route: 048
     Dates: start: 2008
  4. TEMODAR [Suspect]
     Active Substance: TEMOZOLOMIDE
     Indication: BRAIN NEOPLASM
     Dosage: ^40^ ONCE DAILY
     Route: 048
     Dates: start: 200806

REACTIONS (5)
  - Product supply issue [Unknown]
  - Abnormal behaviour [Unknown]
  - Expired product administered [Unknown]
  - Product dose omission issue [Unknown]
  - Inappropriate schedule of product administration [Unknown]

NARRATIVE: CASE EVENT DATE: 2008
